FAERS Safety Report 9023767 (Version 1)
Quarter: 2013Q1

REPORT INFORMATION
  Report Type: Spontaneous
  Country: US (occurrence: US)
  Receive Date: 20130121
  Receipt Date: 20130121
  Transmission Date: 20140127
  Serious: Yes (Other)
  Sender: FDA-Public Use
  Company Number: US-FRI-1000041663

PATIENT
  Age: 36 Year
  Sex: Male

DRUGS (10)
  1. VIIBRYD [Suspect]
     Indication: DEPRESSION
     Dosage: 10 MG
     Route: 048
     Dates: start: 201212, end: 201212
  2. VIIBRYD [Suspect]
     Dosage: 20 MG
     Route: 048
     Dates: start: 201212, end: 201212
  3. VIIBRYD [Suspect]
     Indication: DEPRESSION
     Dosage: 40 MG
     Route: 048
     Dates: start: 201212, end: 201301
  4. VIIBRYD [Suspect]
     Dosage: 20 MG
     Route: 048
     Dates: start: 201301, end: 201301
  5. VIIBRYD [Suspect]
     Dosage: 10 MG
     Route: 048
     Dates: start: 201301
  6. TEGRETOL [Concomitant]
  7. GABAPENTIN [Concomitant]
  8. OMEPRAZOLE [Concomitant]
  9. LISINOPRIL [Concomitant]
  10. AMBIEN [Concomitant]

REACTIONS (4)
  - Panic attack [Not Recovered/Not Resolved]
  - Speech disorder [Not Recovered/Not Resolved]
  - Violence-related symptom [Recovered/Resolved]
  - Suicidal ideation [Recovered/Resolved]
